FAERS Safety Report 9372749 (Version 2)
Quarter: 2013Q3

REPORT INFORMATION
  Report Type: Spontaneous
  Country: US (occurrence: US)
  Receive Date: 20130627
  Receipt Date: 20130718
  Transmission Date: 20140515
  Serious: No
  Sender: FDA-Public Use
  Company Number: US-TEVA-415192USA

PATIENT
  Sex: Female

DRUGS (1)
  1. AZILECT [Suspect]
     Route: 048
     Dates: start: 201302

REACTIONS (2)
  - Dental caries [Recovered/Resolved]
  - Tooth fracture [Recovered/Resolved]
